FAERS Safety Report 4573561-X (Version None)
Quarter: 2005Q1

REPORT INFORMATION
  Report Type: 
  Country: None (occurrence: None)
  Receive Date: 20050208
  Receipt Date: 20040917
  Transmission Date: 20050727
  Serious: No
  Sender: FDA-Public Use
  Company Number: US-GLAXOSMITHKLINE-A0526173A

PATIENT
  Age: 11 Year
  Sex: Female

DRUGS (1)
  1. PAXIL [Suspect]
     Indication: IRRITABLE BOWEL SYNDROME
     Route: 048

REACTIONS (2)
  - ANGER [None]
  - DEPRESSION [None]
